FAERS Safety Report 11440527 (Version 1)
Quarter: 2015Q3

REPORT INFORMATION
  Report Type: Spontaneous
  Country: US (occurrence: US)
  Receive Date: 20150901
  Receipt Date: 20150901
  Transmission Date: 20151125
  Serious: No
  Sender: FDA-Public Use
  Company Number: US-ROCHE-1149802

PATIENT
  Sex: Male
  Weight: 102.15 kg

DRUGS (3)
  1. RIBAVIRIN. [Suspect]
     Active Substance: RIBAVIRIN
     Indication: PRODUCT USED FOR UNKNOWN INDICATION
     Route: 065
  2. PEGASYS [Suspect]
     Active Substance: PEGINTERFERON ALFA-2A
     Indication: PRODUCT USED FOR UNKNOWN INDICATION
     Route: 065
  3. INCIVEK [Suspect]
     Active Substance: TELAPREVIR
     Indication: PRODUCT USED FOR UNKNOWN INDICATION
     Route: 065

REACTIONS (15)
  - Fatigue [Unknown]
  - Prostatic disorder [Unknown]
  - Asthenia [Unknown]
  - Abdominal pain upper [Unknown]
  - Malaise [Unknown]
  - Rectal ulcer [Unknown]
  - Faecal incontinence [Unknown]
  - Dyspnoea [Unknown]
  - Depression [Unknown]
  - Pruritus [Unknown]
  - Rash [Unknown]
  - Dysuria [Unknown]
  - Weight decreased [Unknown]
  - Influenza like illness [Unknown]
  - Crying [Unknown]
